FAERS Safety Report 11183957 (Version 1)
Quarter: 2015Q2

REPORT INFORMATION
  Report Type: Spontaneous
  Country: KR (occurrence: None)
  Receive Date: 20150610
  Receipt Date: 20150610
  Transmission Date: 20150821
  Serious: Yes (Death, Hospitalization, Other)
  Sender: FDA-Public Use
  Company Number: 2015AMD00088

PATIENT
  Age: 15 Year
  Sex: Male

DRUGS (8)
  1. METHOTREXATE (METHOTREXATE) [Suspect]
     Active Substance: METHOTREXATE
     Indication: BURKITT^S LEUKAEMIA
     Dosage: 15MG, 11 ROUNDS
     Route: 037
  2. HYDROCORTISONE (HYDROCORTISONE) [Suspect]
     Active Substance: HYDROCORTISONE
     Indication: BURKITT^S LEUKAEMIA
     Route: 037
  3. PREDNISOLONE (3 CYCLES) [Concomitant]
  4. DOXORUBICIN (1 CYCLE) [Concomitant]
  5. CYTARABINE (CYTARABINE) INJECTION [Suspect]
     Active Substance: CYTARABINE
     Indication: BURKITT^S LEUKAEMIA
     Route: 037
  6. CYCLOPHOSPHAMIDE (3 CYCLES) [Concomitant]
  7. VINCRISTINE (3 CYCLES) [Concomitant]
  8. ETOPOSIDE (1 CYCLE) [Concomitant]

REACTIONS (12)
  - Hypoaesthesia [None]
  - Dysphagia [None]
  - Respiratory failure [None]
  - Dysuria [None]
  - Ataxia [None]
  - Loss of proprioception [None]
  - Cranial nerve disorder [None]
  - Peripheral sensorimotor neuropathy [None]
  - Asthenia [None]
  - Myelopathy [None]
  - Abasia [None]
  - Muscular weakness [None]
